FAERS Safety Report 7892288-X (Version None)
Quarter: 2011Q4

REPORT INFORMATION
  Report Type: 
  Country: None (occurrence: None)
  Receive Date: 20111104
  Receipt Date: 20111026
  Transmission Date: 20120403
  Serious: No
  Sender: FDA-Public Use
  Company Number: US-BIOGENIDEC-2011BI041200

PATIENT
  Age: 34 Year
  Sex: Female

DRUGS (4)
  1. TYSABRI [Suspect]
     Indication: MULTIPLE SCLEROSIS
     Route: 042
     Dates: start: 20110830
  2. TYSABRI [Suspect]
     Route: 042
     Dates: start: 20070601, end: 20071022
  3. AVONEX [Concomitant]
     Indication: MULTIPLE SCLEROSIS
     Route: 030
     Dates: start: 20010722, end: 20060317
  4. TYSABRI [Suspect]
     Route: 042
     Dates: start: 20031002, end: 20050204

REACTIONS (1)
  - HYPOAESTHESIA [None]
